FAERS Safety Report 18659780 (Version 1)
Quarter: 2020Q4

REPORT INFORMATION
  Report Type: Spontaneous
  Country: BG (occurrence: BG)
  Receive Date: 20201224
  Receipt Date: 20201224
  Transmission Date: 20210114
  Serious: Yes (Hospitalization, Other)
  Sender: FDA-Public Use
  Company Number: BG-PFIZER INC-2020510127

PATIENT
  Age: 47 Year
  Sex: Male

DRUGS (1)
  1. VYNDAQEL [Suspect]
     Active Substance: TAFAMIDIS MEGLUMINE
     Indication: HEREDITARY NEUROPATHIC AMYLOIDOSIS
     Dosage: 20 MG, DAILY
     Dates: start: 2018

REACTIONS (2)
  - Ischaemic stroke [Recovered/Resolved with Sequelae]
  - COVID-19 [Unknown]

NARRATIVE: CASE EVENT DATE: 20201122
